FAERS Safety Report 15551515 (Version 3)
Quarter: 2018Q4

REPORT INFORMATION
  Report Type: Spontaneous
  Country: JP (occurrence: JP)
  Receive Date: 20181025
  Receipt Date: 20181122
  Transmission Date: 20190205
  Serious: Yes (Hospitalization)
  Sender: FDA-Public Use
  Company Number: JP-FERRINGPH-2018FE05879

PATIENT

DRUGS (6)
  1. MINIRINMELT [Suspect]
     Active Substance: DESMOPRESSIN ACETATE
     Indication: DIABETES INSIPIDUS
     Dosage: 60 ?G, EVERY OTHER DAY
     Route: 048
  2. THYRADIN-S [Concomitant]
     Active Substance: LEVOTHYROXINE
  3. TAKECAB [Concomitant]
     Active Substance: VONOPRAZAN FUMURATE
  4. PREDONINE [Concomitant]
     Active Substance: PREDNISOLONE
     Dosage: 17 MG, UNK
  5. MINIRINMELT [Suspect]
     Active Substance: DESMOPRESSIN ACETATE
     Dosage: 30 ?G, EVERY OTHER DAY
     Route: 048
  6. E KEPPRA [Concomitant]
     Active Substance: LEVETIRACETAM
     Dosage: UNK

REACTIONS (2)
  - Femur fracture [Unknown]
  - Wrong technique in product usage process [Unknown]
